FAERS Safety Report 10598328 (Version 1)
Quarter: 2014Q4

REPORT INFORMATION
  Report Type: Spontaneous
  Country: JP (occurrence: None)
  Receive Date: 20141119
  Receipt Date: 20141119
  Transmission Date: 20150529
  Serious: Yes (Hospitalization)
  Sender: FDA-Public Use
  Company Number: 2014HINLIT1010

PATIENT
  Age: 29 Year
  Sex: Female

DRUGS (3)
  1. LEVETIRACTAM [Suspect]
     Active Substance: LEVETIRACETAM
     Indication: SEIZURE
  2. PHENYTOIN (PHENYTOIN) [Suspect]
     Active Substance: PHENYTOIN
     Indication: GENERALISED TONIC-CLONIC SEIZURE
  3. SODIUM VALPROATE (VPA) (SODIUM VALPROATE (VPA)) [Suspect]
     Active Substance: VALPROATE SODIUM
     Indication: GENERALISED TONIC-CLONIC SEIZURE

REACTIONS (3)
  - Rhabdomyolysis [None]
  - Back pain [None]
  - Drug level decreased [None]
